FAERS Safety Report 16318852 (Version 1)
Quarter: 2019Q2

REPORT INFORMATION
  Report Type: Spontaneous
  Country: US (occurrence: US)
  Receive Date: 20190516
  Receipt Date: 20190516
  Transmission Date: 20190711
  Serious: Yes (Hospitalization)
  Sender: FDA-Public Use
  Company Number: US-TEVA-2019-US-1052225

PATIENT
  Sex: Female

DRUGS (8)
  1. KLONOPIN [Concomitant]
     Active Substance: CLONAZEPAM
  2. ALEVE [Concomitant]
     Active Substance: NAPROXEN SODIUM
  3. NARATRIPTAN [Concomitant]
     Active Substance: NARATRIPTAN HYDROCHLORIDE
  4. DEPAKOTE [Concomitant]
     Active Substance: DIVALPROEX SODIUM
  5. WELLBUTRIN [Concomitant]
     Active Substance: BUPROPION HYDROCHLORIDE
  6. AJOVY [Suspect]
     Active Substance: FREMANEZUMAB-VFRM
     Indication: MIGRAINE
     Dosage: MONTHLY INJECTIONS
     Dates: start: 201902
  7. BOTOX [Concomitant]
     Active Substance: ONABOTULINUMTOXINA
  8. ADVIL [Concomitant]
     Active Substance: IBUPROFEN

REACTIONS (4)
  - Product dose omission [Unknown]
  - Vomiting [Unknown]
  - Hospitalisation [Unknown]
  - Chest pain [Not Recovered/Not Resolved]
